FAERS Safety Report 16215194 (Version 4)
Quarter: 2019Q4

REPORT INFORMATION
  Report Type: Spontaneous
  Country: US (occurrence: US)
  Receive Date: 20190419
  Receipt Date: 20191016
  Transmission Date: 20200122
  Serious: No
  Sender: FDA-Public Use
  Company Number: US-BIOGEN-2018BI00666009

PATIENT
  Age: 62 Year
  Sex: Female

DRUGS (3)
  1. AVONEX [Suspect]
     Active Substance: INTERFERON BETA-1A
     Route: 050
     Dates: start: 20141001, end: 20181031
  2. AVONEX [Suspect]
     Active Substance: INTERFERON BETA-1A
     Route: 065
  3. AVONEX [Suspect]
     Active Substance: INTERFERON BETA-1A
     Indication: MULTIPLE SCLEROSIS
     Route: 050
     Dates: start: 19980513, end: 20140401

REACTIONS (7)
  - Anxiety [Unknown]
  - Confusional state [Unknown]
  - Drug intolerance [Unknown]
  - Fatigue [Unknown]
  - Cognitive disorder [Unknown]
  - Malaise [Recovered/Resolved]
  - Depression [Unknown]

NARRATIVE: CASE EVENT DATE: 20181128
